FAERS Safety Report 10971431 (Version 1)
Quarter: 2015Q1

REPORT INFORMATION
  Report Type: Spontaneous
  Country: US (occurrence: None)
  Receive Date: 20150330
  Receipt Date: 20150330
  Transmission Date: 20150721
  Serious: Yes (Hospitalization, Disabling, Other)
  Sender: FDA-Public Use
  Company Number: None

PATIENT
  Age: 69 Year
  Sex: Female
  Weight: 58.97 kg

DRUGS (7)
  1. WALKER SEAT [Concomitant]
     Active Substance: DEVICE
  2. PROLIA [Suspect]
     Active Substance: DENOSUMAB
     Indication: OSTEOPOROSIS
     Dosage: 1 INJECTION
     Dates: start: 20110811
  3. AMIODARONE [Concomitant]
     Active Substance: AMIODARONE
  4. COUMADIN [Concomitant]
     Active Substance: WARFARIN SODIUM
  5. METOPROLOL [Concomitant]
     Active Substance: METOPROLOL
  6. CALCIUM [Concomitant]
     Active Substance: CALCIUM
  7. MULTIVITE [Concomitant]
     Active Substance: VITAMINS

REACTIONS (9)
  - Fall [None]
  - Fibromyalgia [None]
  - Hypoaesthesia [None]
  - Peripheral coldness [None]
  - Balance disorder [None]
  - Tooth disorder [None]
  - Anxiety [None]
  - Feeling hot [None]
  - Eye disorder [None]

NARRATIVE: CASE EVENT DATE: 20110811
